FAERS Safety Report 5503234-8 (Version None)
Quarter: 2007Q4

REPORT INFORMATION
  Report Type: 
  Country: None (occurrence: None)
  Receive Date: 20071031
  Receipt Date: 20071022
  Transmission Date: 20080405
  Serious: Yes (Other)
  Sender: FDA-Public Use
  Company Number: US-PFIZER INC-2007088778

PATIENT
  Sex: Male

DRUGS (3)
  1. CORTEF [Suspect]
  2. PREDNISONE [Suspect]
     Dosage: DAILY DOSE:5MG
  3. SAIZEN [Suspect]
     Indication: GROWTH HORMONE DEFICIENCY
     Dosage: DAILY DOSE:1.2MG

REACTIONS (1)
  - SQUAMOUS CELL CARCINOMA [None]
